FAERS Safety Report 7728259-3 (Version None)
Quarter: 2011Q3

REPORT INFORMATION
  Report Type: 
  Country: None (occurrence: None)
  Receive Date: 20110905
  Receipt Date: 20110826
  Transmission Date: 20111222
  Serious: Yes (Other)
  Sender: FDA-Public Use
  Company Number: PHEH2011US02689

PATIENT

DRUGS (1)
  1. RECLAST [Suspect]
     Dosage: 5 MG YEARLY
     Route: 042
     Dates: start: 20110805

REACTIONS (3)
  - MUSCULOSKELETAL PAIN [None]
  - SYNOVITIS [None]
  - ARTHRALGIA [None]
